FAERS Safety Report 13219887 (Version 1)
Quarter: 2017Q1

REPORT INFORMATION
  Report Type: Spontaneous
  Country: TR (occurrence: TR)
  Receive Date: 20170210
  Receipt Date: 20170210
  Transmission Date: 20170428
  Serious: Yes (Life-Threatening)
  Sender: FDA-Public Use
  Company Number: TR-ENDO PHARMACEUTICALS INC-2017-000671

PATIENT
  Age: 13 Year
  Sex: Female

DRUGS (3)
  1. AMOXICILLIN CAPSULES 500 MG SANDOZ [Suspect]
     Active Substance: AMOXICILLIN
     Indication: TONSILLITIS
     Dosage: UNK UNK, UNKNOWN
     Route: 065
  2. SULFASALAZINE. [Suspect]
     Active Substance: SULFASALAZINE
     Indication: SPONDYLITIS
     Dosage: UNK UNK, UNKNOWN
     Route: 065
  3. AMOXICILLIN CAPSULES 500 MG SANDOZ [Suspect]
     Active Substance: AMOXICILLIN
     Indication: PHARYNGITIS

REACTIONS (1)
  - Drug reaction with eosinophilia and systemic symptoms [Unknown]
